FAERS Safety Report 11539174 (Version 1)
Quarter: 2015Q3

REPORT INFORMATION
  Report Type: Report from Study
  Country: US (occurrence: US)
  Receive Date: 20150923
  Receipt Date: 20150923
  Transmission Date: 20151125
  Serious: Yes (Hospitalization, Other)
  Sender: FDA-Public Use
  Company Number: US-GILEAD-2015-0167840

PATIENT
  Age: 62 Year
  Sex: Female

DRUGS (2)
  1. GABAPENTIN. [Suspect]
     Active Substance: GABAPENTIN
     Indication: PRODUCT USED FOR UNKNOWN INDICATION
     Route: 065
  2. AMBRISENTAN [Suspect]
     Active Substance: AMBRISENTAN
     Indication: PRODUCT USED FOR UNKNOWN INDICATION
     Dosage: 5 MG, QD
     Route: 065
     Dates: start: 20140925

REACTIONS (7)
  - Dialysis [Unknown]
  - Fall [Unknown]
  - Blood potassium increased [Unknown]
  - Endotracheal intubation [Unknown]
  - Syncope [Unknown]
  - Asthenia [Unknown]
  - Somnolence [Unknown]

NARRATIVE: CASE EVENT DATE: 201509
